FAERS Safety Report 7519470-5 (Version None)
Quarter: 2011Q2

REPORT INFORMATION
  Report Type: 
  Country: None (occurrence: None)
  Receive Date: 20110525
  Receipt Date: 20110512
  Transmission Date: 20111010
  Serious: Yes (Other)
  Sender: FDA-Public Use
  Company Number: LTI2011A00117

PATIENT
  Age: 75 Year
  Sex: Male

DRUGS (2)
  1. ACTOS [Suspect]
     Indication: TYPE 2 DIABETES MELLITUS
     Dosage: 30 MG (30 MG 1 IN 1 D),ORAL; 15 MG (15 MG, 1 IN 1 D), ORAL
     Route: 048
     Dates: end: 20110501
  2. ACTOS [Suspect]
     Indication: TYPE 2 DIABETES MELLITUS
     Dosage: 30 MG (30 MG 1 IN 1 D),ORAL; 15 MG (15 MG, 1 IN 1 D), ORAL
     Route: 048
     Dates: end: 20110501

REACTIONS (1)
  - BLADDER CANCER [None]
